FAERS Safety Report 14773162 (Version 1)
Quarter: 2018Q2

REPORT INFORMATION
  Report Type: Spontaneous
  Country: CH (occurrence: CH)
  Receive Date: 20180418
  Receipt Date: 20180418
  Transmission Date: 20180711
  Serious: Yes (Death, Life-Threatening, Other)
  Sender: FDA-Public Use
  Company Number: CH-SUN PHARMACEUTICAL INDUSTRIES LTD-2018RR-170093

PATIENT
  Age: 7 Month
  Sex: Female

DRUGS (7)
  1. ETOPOSIDE. [Suspect]
     Active Substance: ETOPOSIDE
     Indication: RETINOBLASTOMA
     Dosage: 3 COURSES OF (VINCRISTIN-ETOPOSID-CARBOPLATIN)
     Route: 042
  2. MELPHALAN. [Suspect]
     Active Substance: MELPHALAN
     Indication: RETINOBLASTOMA
     Dosage: 12 INTRAVITREAL MELPHALAN INJECTIONS (IVIC)
     Route: 031
  3. ETOPOSIDE. [Suspect]
     Active Substance: ETOPOSIDE
     Indication: PINEALOBLASTOMA
     Dosage: HIGH-DOSE CHEMOTHERAPY WITH CARBOPLATIN, THIOTEPA, AND ETOPOSIDE
     Route: 065
  4. VINCRISTINE [Suspect]
     Active Substance: VINCRISTINE
     Indication: RETINOBLASTOMA
     Dosage: 3 COURSES OF (VINCRISTIN-ETOPOSID-CARBOPLATIN)
     Route: 042
  5. CARBOPLATIN. [Suspect]
     Active Substance: CARBOPLATIN
     Indication: PINEALOBLASTOMA
     Dosage: HIGH-DOSE CHEMOTHERAPY WITH CARBOPLATIN, THIOTEPA, AND ETOPOSIDE
     Route: 065
  6. THIOTEPA. [Suspect]
     Active Substance: THIOTEPA
     Indication: PINEALOBLASTOMA
     Dosage: HIGH-DOSE CHEMOTHERAPY WITH CARBOPLATIN, THIOTEPA, AND ETOPOSIDE
     Route: 065
  7. CARBOPLATIN. [Suspect]
     Active Substance: CARBOPLATIN
     Indication: RETINOBLASTOMA
     Dosage: 3 COURSES OF (VINCRISTIN-ETOPOSID-CARBOPLATIN)
     Route: 042

REACTIONS (5)
  - Drug effect incomplete [Unknown]
  - Malignant neoplasm of choroid [Unknown]
  - Pyrexia [Not Recovered/Not Resolved]
  - Disseminated intravascular coagulation [Fatal]
  - Multiple organ dysfunction syndrome [Fatal]
